FAERS Safety Report 6403783-4 (Version None)
Quarter: 2009Q4

REPORT INFORMATION
  Report Type: 
  Country: None (occurrence: None)
  Receive Date: 20091016
  Receipt Date: 20091009
  Transmission Date: 20100525
  Serious: Yes (Other)
  Sender: FDA-Public Use
  Company Number: US-JNJFOC-20091003861

PATIENT
  Sex: Male

DRUGS (1)
  1. CONCERTA [Suspect]
     Indication: DRUG USE FOR UNKNOWN INDICATION
     Route: 065
     Dates: start: 20090701

REACTIONS (4)
  - ABNORMAL BEHAVIOUR [None]
  - ANXIETY [None]
  - EMOTIONAL DISORDER [None]
  - MEMORY IMPAIRMENT [None]
